FAERS Safety Report 12787391 (Version 1)
Quarter: 2016Q3

REPORT INFORMATION
  Report Type: Spontaneous
  Country: US (occurrence: US)
  Receive Date: 20160928
  Receipt Date: 20160928
  Transmission Date: 20161109
  Serious: Yes (Hospitalization)
  Sender: FDA-Public Use
  Company Number: US-UNITED THERAPEUTICS-UNT-2016-014861

PATIENT
  Age: 65 Year
  Sex: Female
  Weight: 50.79 kg

DRUGS (1)
  1. REMODULIN [Suspect]
     Active Substance: TREPROSTINIL
     Indication: PULMONARY ARTERIAL HYPERTENSION
     Dosage: 0.166 ?G/KG, CONTINUING
     Route: 058
     Dates: start: 20150815

REACTIONS (2)
  - General physical health deterioration [Unknown]
  - Fluid retention [Unknown]

NARRATIVE: CASE EVENT DATE: 201609
